FAERS Safety Report 5790837-9 (Version None)
Quarter: 2008Q2

REPORT INFORMATION
  Report Type: 
  Country: None (occurrence: None)
  Receive Date: 20080626
  Receipt Date: 20080507
  Transmission Date: 20081010
  Serious: No
  Sender: FDA-Public Use
  Company Number: A0726723A

PATIENT
  Age: 53 Year
  Sex: Female

DRUGS (1)
  1. ALLI [Suspect]
     Dates: start: 20080503, end: 20080505

REACTIONS (2)
  - ABDOMINAL DISTENSION [None]
  - FLATULENCE [None]
